FAERS Safety Report 7472746-2 (Version None)
Quarter: 2011Q1

REPORT INFORMATION
  Report Type: 
  Country: None (occurrence: None)
  Receive Date: 20110302
  Receipt Date: 20101213
  Transmission Date: 20110831
  Serious: Yes (Other)
  Sender: FDA-Public Use
  Company Number: 163-21880-10121842

PATIENT

DRUGS (3)
  1. PERIFOSINE (PERIFOSINE) (UNKNOWN) [Suspect]
     Indication: MULTIPLE MYELOMA
     Dosage: 50MG - COHORT 1, 50MG - COHORT 2, 100MG - COHORT 3 + 4
  2. REVLIMID [Suspect]
     Indication: MULTIPLE MYELOMA
     Dosage: 15MG - COHORT 1, PO; 25MG - COHORT 2, PO; 15MG - COHORT 3, PO; 25MG - COHORT 4, PO
     Route: 048
  3. DEXAMETHASONE [Suspect]
     Indication: MULTIPLE MYELOMA
     Dosage: 20MG - COHORT 1, 20MG - COHORT 2, 40MG - COHORT 3 + 4

REACTIONS (9)
  - FATIGUE [None]
  - DIARRHOEA [None]
  - HYPOPHOSPHATAEMIA [None]
  - NEUTROPENIA [None]
  - LEUKOPENIA [None]
  - NAUSEA [None]
  - HYPERGLYCAEMIA [None]
  - THROMBOCYTOPENIA [None]
  - UPPER RESPIRATORY TRACT INFECTION [None]
